FAERS Safety Report 6163075-8 (Version None)
Quarter: 2009Q2

REPORT INFORMATION
  Report Type: 
  Country: None (occurrence: None)
  Receive Date: 20090422
  Receipt Date: 20090414
  Transmission Date: 20091009
  Serious: No
  Sender: FDA-Public Use
  Company Number: US-B.I. PHARMACEUTICALS,INC./RIDGEFIELD-2009-BP-04765BP

PATIENT
  Sex: Female

DRUGS (8)
  1. SPIRIVA [Suspect]
     Indication: EMPHYSEMA
     Dosage: 18MCG
     Route: 055
     Dates: start: 20090224, end: 20090228
  2. ZYRTEC [Concomitant]
     Indication: MULTIPLE ALLERGIES
  3. BENADRYL [Concomitant]
     Indication: MULTIPLE ALLERGIES
  4. BP MEDICATION [Concomitant]
     Indication: HYPERTENSION
  5. THYROID TAB [Concomitant]
     Indication: THYROID DISORDER
  6. HORMONE [Concomitant]
     Indication: HYSTERECTOMY
  7. MUCINEX [Concomitant]
     Indication: EMPHYSEMA
  8. ALBUTEROL [Concomitant]
     Indication: EMPHYSEMA

REACTIONS (2)
  - RASH ERYTHEMATOUS [None]
  - SWOLLEN TONGUE [None]
